FAERS Safety Report 23911051 (Version 2)
Quarter: 2025Q2

REPORT INFORMATION
  Report Type: Report from Study
  Country: FR (occurrence: FR)
  Receive Date: 20240528
  Receipt Date: 20250530
  Transmission Date: 20250716
  Serious: No
  Sender: JOHNSON AND JOHNSON
  Company Number: FR-JNJFOC-20210647913

PATIENT
  Age: 51 Year
  Sex: Male

DRUGS (2)
  1. SIMPONI [Suspect]
     Active Substance: GOLIMUMAB
     Indication: Colitis ulcerative
     Route: 058
     Dates: start: 20191201, end: 20240401
  2. SIMPONI [Suspect]
     Active Substance: GOLIMUMAB
     Route: 058
     Dates: start: 20140801, end: 20191231

REACTIONS (2)
  - Skin cancer [Recovered/Resolved]
  - Adverse event [Recovering/Resolving]

NARRATIVE: CASE EVENT DATE: 20210528
